FAERS Safety Report 8697196 (Version 4)
Quarter: 2017Q2

REPORT INFORMATION
  Report Type: Spontaneous
  Country: US (occurrence: US)
  Receive Date: 20120801
  Receipt Date: 20170406
  Transmission Date: 20170830
  Serious: Yes (Other)
  Sender: FDA-Public Use
  Company Number: US-PFIZER INC-2012184047

PATIENT
  Age: 73 Year
  Sex: Male
  Weight: 73.92 kg

DRUGS (3)
  1. SUTENT [Suspect]
     Active Substance: SUNITINIB MALATE
     Indication: RENAL CELL CARCINOMA
     Dosage: 50 MG, UNK
     Dates: start: 20120629, end: 20120726
  2. LOSARTAN. [Concomitant]
     Active Substance: LOSARTAN
     Dosage: UNK
  3. NITROFURANTOIN. [Concomitant]
     Active Substance: NITROFURANTOIN
     Dosage: TWICE DAILY
     Dates: start: 20120726

REACTIONS (6)
  - Asthenia [Unknown]
  - Burn oral cavity [Unknown]
  - Decreased appetite [Unknown]
  - Prostatic disorder [Unknown]
  - Skin atrophy [Unknown]
  - Blood urine present [Unknown]

NARRATIVE: CASE EVENT DATE: 201207
